FAERS Safety Report 8773781 (Version 1)
Quarter: 2012Q4

REPORT INFORMATION
  Report Type: 
  Country: US (occurrence: US)
  Receive Date: 20120907
  Receipt Date: 20120907
  Transmission Date: 20130627
  Serious: Yes (Hospitalization, Other)
  Sender: FDA-Public Use
  Company Number: US-B.I. PHARMACEUTICALS,INC./RIDGEFIELD-2012-BP-21335BP

PATIENT
  Age: 65 None
  Sex: Male
  Weight: 86 kg

DRUGS (12)
  1. SPIRIVA [Suspect]
     Indication: CHRONIC OBSTRUCTIVE PULMONARY DISEASE
     Dosage: 18 mcg
     Route: 055
     Dates: start: 200611
  2. CRESTOR [Concomitant]
     Indication: BLOOD CHOLESTEROL
     Dosage: 20 mg
     Route: 048
     Dates: start: 200604
  3. ALPRAZOLAM [Concomitant]
     Indication: ANXIETY
     Dosage: 1.5 mg
     Route: 048
     Dates: start: 2011
  4. VICODIN [Concomitant]
     Indication: NECK PAIN
     Route: 048
  5. ASPIRIN [Concomitant]
     Indication: ROUTINE HEALTH MAINTENANCE
     Dosage: 81 mg
     Route: 048
     Dates: start: 2002
  6. TESTOSTERONE [Concomitant]
     Indication: BLOOD TESTOSTERONE DECREASED
     Route: 042
     Dates: start: 2001
  7. FUROSEMIDE [Concomitant]
     Indication: DIURETIC THERAPY
     Dosage: 20 mg
     Route: 048
     Dates: start: 2007
  8. DILTIAZEM [Concomitant]
     Indication: ATRIAL FIBRILLATION
     Dosage: 360 mg
     Route: 048
     Dates: start: 2010
  9. LISINOPRIL [Concomitant]
     Indication: BLOOD PRESSURE
     Dosage: 20 mg
     Route: 048
     Dates: start: 2008
  10. FOLIC ACID [Concomitant]
     Dosage: 800 mcg
     Route: 048
     Dates: start: 2006
  11. MVI [Concomitant]
     Route: 048
  12. VIT D3 [Concomitant]
     Indication: HYPOVITAMINOSIS
     Dosage: 10000 U
     Route: 048
     Dates: start: 201201

REACTIONS (6)
  - Pneumonia [Recovered/Resolved]
  - Cardiac failure congestive [Not Recovered/Not Resolved]
  - Diaphragmatic paralysis [Not Recovered/Not Resolved]
  - Cardiac murmur [Not Recovered/Not Resolved]
  - Haemorrhage urinary tract [Recovered/Resolved]
  - Product quality issue [Unknown]
